FAERS Safety Report 9388778 (Version 1)
Quarter: 2013Q3

REPORT INFORMATION
  Report Type: Spontaneous
  Country: US (occurrence: US)
  Receive Date: 20130708
  Receipt Date: 20130708
  Transmission Date: 20140515
  Serious: No
  Sender: FDA-Public Use
  Company Number: US-PFIZER INC-2013199388

PATIENT
  Sex: 0

DRUGS (2)
  1. ZOLOFT [Suspect]
     Dosage: 100 MG, UNK
  2. ZOLOFT [Suspect]
     Dosage: 100 MG, UNK

REACTIONS (6)
  - Tremor [Unknown]
  - Feeling abnormal [Unknown]
  - Dizziness [Unknown]
  - Formication [Unknown]
  - Pruritus [Unknown]
  - Withdrawal syndrome [Unknown]
